FAERS Safety Report 18450559 (Version 1)
Quarter: 2020Q4

REPORT INFORMATION
  Report Type: Spontaneous
  Country: US (occurrence: US)
  Receive Date: 20201030
  Receipt Date: 20201030
  Transmission Date: 20210114
  Serious: Yes (Other)
  Sender: FDA-Public Use
  Company Number: US-BOIRON INC.-2020BOR00196

PATIENT
  Age: 2 Month
  Sex: Female

DRUGS (2)
  1. ALUMINA [Suspect]
     Active Substance: HOMEOPATHICS
  2. THUJA OCCIDENTALIS [Suspect]
     Active Substance: HOMEOPATHICS

REACTIONS (3)
  - Haematochezia [Unknown]
  - Irritability [Unknown]
  - Flatulence [Unknown]
